FAERS Safety Report 8509665-6 (Version None)
Quarter: 2012Q3

REPORT INFORMATION
  Report Type: 
  Country: None (occurrence: None)
  Receive Date: 20120713
  Receipt Date: 20120705
  Transmission Date: 20120928
  Serious: Yes (Hospitalization, Other)
  Sender: FDA-Public Use
  Company Number: US-MSD-1204USA04340

PATIENT

DRUGS (7)
  1. VERAPAMIL [Concomitant]
  2. NEURONTIN [Concomitant]
  3. PROZAC [Concomitant]
  4. ZOCOR [Suspect]
     Indication: BLOOD CHOLESTEROL INCREASED
     Route: 048
  5. LANTUS [Concomitant]
  6. MK-0805 [Concomitant]
  7. HUMALOG [Concomitant]

REACTIONS (9)
  - ASTHENIA [None]
  - DEHYDRATION [None]
  - MYOCARDIAL INFARCTION [None]
  - HYPOTENSION [None]
  - NAUSEA [None]
  - MENTAL STATUS CHANGES [None]
  - RENAL FAILURE ACUTE [None]
  - RHABDOMYOLYSIS [None]
  - WEIGHT INCREASED [None]
